FAERS Safety Report 8237387-8 (Version None)
Quarter: 2012Q1

REPORT INFORMATION
  Report Type: 
  Country: None (occurrence: None)
  Receive Date: 20120327
  Receipt Date: 20120320
  Transmission Date: 20120608
  Serious: Yes (Hospitalization, Other)
  Sender: FDA-Public Use
  Company Number: US-BAYER-2011-061816

PATIENT
  Age: 19 Year
  Sex: Female
  Weight: 63.492 kg

DRUGS (7)
  1. BUTALBITAL, ASPIRIN, AND CAFFEINE [Concomitant]
  2. AMITRIPTYLINE HCL [Concomitant]
     Dosage: 10 MG, UNK
  3. YAZ [Suspect]
     Indication: PREMENSTRUAL SYNDROME
  4. YAZ [Suspect]
     Indication: CONTRACEPTION
     Dosage: UNK
     Dates: start: 20080401, end: 20080725
  5. BACTRIM DS [Concomitant]
  6. DARVOCET [Concomitant]
  7. FIORINAL [Concomitant]

REACTIONS (9)
  - GENERAL PHYSICAL HEALTH DETERIORATION [None]
  - PLEURAL EFFUSION [None]
  - EMOTIONAL DISTRESS [None]
  - ATELECTASIS [None]
  - DYSPNOEA [None]
  - PULMONARY EMBOLISM [None]
  - INJURY [None]
  - PAIN [None]
  - PULMONARY FIBROSIS [None]
